FAERS Safety Report 5695167-1 (Version None)
Quarter: 2008Q2

REPORT INFORMATION
  Report Type: 
  Country: None (occurrence: None)
  Receive Date: 20080404
  Receipt Date: 20080325
  Transmission Date: 20081010
  Serious: Yes (Other)
  Sender: FDA-Public Use
  Company Number: US-PFIZER INC-2008026979

PATIENT
  Sex: Male
  Weight: 106.81 kg

DRUGS (3)
  1. DILANTIN [Suspect]
     Indication: EPILEPSY
  2. DILANTIN [Suspect]
     Dosage: TEXT:100 MG DALIY EVERY DAY TDD:400 MG
  3. PHENYTOIN [Suspect]
     Indication: EPILEPSY

REACTIONS (4)
  - DIABETES MELLITUS [None]
  - DIZZINESS [None]
  - FATIGUE [None]
  - VASCULAR GRAFT [None]
